FAERS Safety Report 8417046-9 (Version None)
Quarter: 2012Q2

REPORT INFORMATION
  Report Type: 
  Country: None (occurrence: None)
  Receive Date: 20120606
  Receipt Date: 20120530
  Transmission Date: 20120825
  Serious: Yes (Other)
  Sender: FDA-Public Use
  Company Number: JP-PFIZER INC-2012130360

PATIENT
  Sex: Male

DRUGS (2)
  1. LYRICA [Suspect]
     Dosage: 75 MG, 2X/DAY
     Dates: start: 20120125
  2. LENDORMIN [Concomitant]
     Dosage: UNK

REACTIONS (3)
  - HALLUCINATION, AUDITORY [None]
  - FALL [None]
  - SPINAL COLUMN INJURY [None]
